FAERS Safety Report 9531288 (Version 3)
Quarter: 2016Q2

REPORT INFORMATION
  Report Type: Spontaneous
  Country: AT (occurrence: AT)
  Receive Date: 20130918
  Receipt Date: 20160420
  Transmission Date: 20160815
  Serious: Yes (Other)
  Sender: FDA-Public Use
  Company Number: AT-JNJFOC-20130906051

PATIENT

DRUGS (5)
  1. DOXORUBICIN [Suspect]
     Active Substance: DOXORUBICIN
     Indication: DIFFUSE LARGE B-CELL LYMPHOMA
     Route: 042
  2. RITUXIMAB [Suspect]
     Active Substance: RITUXIMAB
     Indication: DIFFUSE LARGE B-CELL LYMPHOMA
     Route: 065
  3. PREDNISOLONE. [Suspect]
     Active Substance: PREDNISOLONE
     Indication: DIFFUSE LARGE B-CELL LYMPHOMA
     Route: 065
  4. CYCLOPHOSPHAMIDE. [Suspect]
     Active Substance: CYCLOPHOSPHAMIDE
     Indication: DIFFUSE LARGE B-CELL LYMPHOMA
     Route: 065
  5. VINCRISTINE [Suspect]
     Active Substance: VINCRISTINE
     Indication: DIFFUSE LARGE B-CELL LYMPHOMA
     Route: 065

REACTIONS (26)
  - Ejection fraction decreased [Unknown]
  - Infection [Unknown]
  - Hypotension [Unknown]
  - Pneumonia [Unknown]
  - Pain [Unknown]
  - N-terminal prohormone brain natriuretic peptide decreased [Unknown]
  - Diarrhoea [Unknown]
  - Angina pectoris [Unknown]
  - Transaminases abnormal [Unknown]
  - Stomatitis [Unknown]
  - Chills [Unknown]
  - Blood bilirubin abnormal [Unknown]
  - Blood creatinine increased [Unknown]
  - Nephropathy toxic [Unknown]
  - Asthenia [Unknown]
  - Haematuria [Unknown]
  - Diffuse large B-cell lymphoma [Unknown]
  - Cardiac failure [Unknown]
  - Febrile neutropenia [Unknown]
  - Oedema peripheral [Unknown]
  - Alopecia [Unknown]
  - Pyrexia [Unknown]
  - Hypocalcaemia [Unknown]
  - Hyperglycaemia [Unknown]
  - Haemorrhage [Unknown]
  - Haematotoxicity [Unknown]
